FAERS Safety Report 7652745-8 (Version None)
Quarter: 2011Q3

REPORT INFORMATION
  Report Type: 
  Country: None (occurrence: None)
  Receive Date: 20110803
  Receipt Date: 20110722
  Transmission Date: 20111222
  Serious: Yes (Hospitalization)
  Sender: FDA-Public Use
  Company Number: JP-JNJFOC-20100904053

PATIENT
  Age: 51 Year
  Sex: Female

DRUGS (4)
  1. ETANERCEPT [Suspect]
     Indication: RHEUMATOID ARTHRITIS
     Route: 065
     Dates: start: 20070801, end: 20080101
  2. TOCILIZUMAB [Suspect]
     Indication: RHEUMATOID ARTHRITIS
     Route: 065
     Dates: start: 20080701, end: 20080101
  3. REMICADE [Suspect]
     Dosage: TOTAL OF 1 DOSE ADMINISTERED
     Route: 042
     Dates: start: 20070201
  4. REMICADE [Suspect]
     Indication: RHEUMATOID ARTHRITIS
     Route: 042
     Dates: start: 20070801

REACTIONS (2)
  - DRUG INEFFECTIVE [None]
  - BREAST CANCER [None]
